FAERS Safety Report 8801707 (Version 1)
Quarter: 2012Q4

REPORT INFORMATION
  Report Type: 
  Country: JO (occurrence: JO)
  Receive Date: 20120921
  Receipt Date: 20120921
  Transmission Date: 20130627
  Serious: Yes (Death)
  Sender: FDA-Public Use
  Company Number: JO-SANOFI-AVENTIS-2012SA069004

PATIENT
  Age: 76 Year
  Sex: Male
  Weight: 80 kg

DRUGS (4)
  1. TARGOCID [Suspect]
     Indication: PROPHYLAXIS
     Dosage: preoperative and post-operative
     Route: 042
  2. TARGOCID [Suspect]
     Indication: PREOPERATIVE CARE
     Dosage: preoperative and post-operative
     Route: 042
  3. CLEXANE [Suspect]
     Indication: PROPHYLAXIS
     Route: 030
  4. PERFALGAN [Concomitant]
     Route: 042

REACTIONS (3)
  - Hyperpyrexia [Fatal]
  - Chills [Fatal]
  - Dyspnoea [Fatal]
